FAERS Safety Report 9572325 (Version 1)
Quarter: 2013Q3

REPORT INFORMATION
  Report Type: Spontaneous
  Country: ES (occurrence: None)
  Receive Date: 20130927
  Receipt Date: 20130927
  Transmission Date: 20140515
  Serious: Yes (Other)
  Sender: FDA-Public Use
  Company Number: ES-ZYDUS-002243

PATIENT
  Age: 38 Year
  Sex: Male

DRUGS (1)
  1. LEVOFLOXACIN ( LEVOFLOXACIN) [Suspect]
     Route: 048
     Dates: start: 20100111, end: 20100114

REACTIONS (3)
  - Delirium [None]
  - Disorientation [None]
  - Hallucination, visual [None]
